FAERS Safety Report 4291926-0 (Version None)
Quarter: 2004Q1

REPORT INFORMATION
  Report Type: 
  Country: None (occurrence: None)
  Receive Date: 20040126
  Receipt Date: 20031027
  Transmission Date: 20041129
  Serious: No
  Sender: FDA-Public Use
  Company Number: USA031050852

PATIENT
  Age: 59 Year
  Sex: Male

DRUGS (5)
  1. FORTEO [Suspect]
     Indication: OSTEOPOROSIS
     Dosage: 1 DSG FORM/ 1 DAY
     Dates: start: 20030701
  2. PARNATE [Concomitant]
  3. FLOMAX [Concomitant]
  4. OXYBUTYNIN [Concomitant]
  5. AMBIEN [Concomitant]

REACTIONS (4)
  - ARTHRALGIA [None]
  - MUSCLE CRAMP [None]
  - PAIN [None]
  - PAIN IN EXTREMITY [None]
